FAERS Safety Report 17070559 (Version 1)
Quarter: 2019Q4

REPORT INFORMATION
  Report Type: Spontaneous
  Country: US (occurrence: US)
  Receive Date: 20191125
  Receipt Date: 20191125
  Transmission Date: 20200122
  Serious: Yes (Hospitalization, Other)
  Sender: FDA-Public Use
  Company Number: US-BAYER-2019-121731

PATIENT
  Age: 58 Year
  Sex: Female

DRUGS (3)
  1. XARELTO [Suspect]
     Active Substance: RIVAROXABAN
     Indication: ANTICOAGULANT THERAPY
  2. ACETYLSALICYLIC ACID (PAIN AND FEVER) [Suspect]
     Active Substance: ASPIRIN
     Indication: PRODUCT USED FOR UNKNOWN INDICATION
     Dosage: UNK
     Route: 065
  3. XARELTO [Suspect]
     Active Substance: RIVAROXABAN
     Indication: CEREBROVASCULAR ACCIDENT
     Dosage: 20 MG UNK
     Route: 048
     Dates: start: 20130906, end: 201703

REACTIONS (9)
  - Coronary artery disease [Unknown]
  - Gastrointestinal haemorrhage [Recovered/Resolved]
  - Chronic obstructive pulmonary disease [Unknown]
  - Type V hyperlipidaemia [Unknown]
  - Rectal haemorrhage [Unknown]
  - Antiphospholipid syndrome [Unknown]
  - Hypothyroidism [Unknown]
  - Diabetes mellitus [Unknown]
  - Haemoptysis [Unknown]

NARRATIVE: CASE EVENT DATE: 201309
